FAERS Safety Report 10925373 (Version 1)
Quarter: 2015Q1

REPORT INFORMATION
  Report Type: Spontaneous
  Country: US (occurrence: None)
  Receive Date: 20150316
  Receipt Date: 20150316
  Transmission Date: 20150721
  Serious: Yes (Other)
  Sender: FDA-Public Use
  Company Number: None

PATIENT
  Age: 77 Year
  Sex: Female
  Weight: 85.28 kg

DRUGS (18)
  1. PRAMIPEXOLE [Suspect]
     Active Substance: PRAMIPEXOLE
     Indication: RESTLESS LEGS SYNDROME
     Dosage: 2 PILLS
     Route: 048
  2. CLONAZEPAM. [Concomitant]
     Active Substance: CLONAZEPAM
  3. METOPROLOL TARTATE [Concomitant]
     Active Substance: METOPROLOL TARTRATE
  4. OXIDODONE [Concomitant]
  5. D [Concomitant]
  6. FISH OIL [Concomitant]
     Active Substance: FISH OIL
  7. GARLIC. [Concomitant]
     Active Substance: GARLIC
  8. DIRURETIC [Concomitant]
  9. WARFARIN [Concomitant]
     Active Substance: WARFARIN
  10. COQ10 [Concomitant]
     Active Substance: UBIDECARENONE
  11. HYDROXYCLOROQUINE [Concomitant]
     Active Substance: HYDROXYCHLOROQUINE
  12. D [Concomitant]
  13. CPAP [Concomitant]
     Active Substance: DEVICE
  14. PRAMIPEXOLE [Concomitant]
     Active Substance: PRAMIPEXOLE
  15. LOSARTAN [Concomitant]
     Active Substance: LOSARTAN
  16. C [Concomitant]
  17. CALCIUM/MAGNESIUM [Concomitant]
  18. MELATONIN [Concomitant]
     Active Substance: MELATONIN

REACTIONS (3)
  - Memory impairment [None]
  - Loss of consciousness [None]
  - Road traffic accident [None]

NARRATIVE: CASE EVENT DATE: 20150221
